FAERS Safety Report 5082368-9 (Version None)
Quarter: 2006Q3

REPORT INFORMATION
  Report Type: 
  Country: None (occurrence: None)
  Receive Date: 20060814
  Receipt Date: 20060803
  Transmission Date: 20061208
  Serious: Yes (Other)
  Sender: FDA-Public Use
  Company Number: B0433513A

PATIENT
  Age: 70 Year
  Sex: Male

DRUGS (2)
  1. LANOXIN [Suspect]
     Indication: VENTRICULAR TACHYCARDIA
     Dosage: SEE TEXT
  2. ESMOLOL HCL [Concomitant]

REACTIONS (6)
  - CARDIOACTIVE DRUG LEVEL ABOVE THERAPEUTIC [None]
  - ELECTROCARDIOGRAM QRS COMPLEX PROLONGED [None]
  - HAEMODIALYSIS [None]
  - PULSE ABNORMAL [None]
  - RENAL TUBULAR NECROSIS [None]
  - VENTRICULAR TACHYCARDIA [None]
